FAERS Safety Report 14542389 (Version 2)
Quarter: 2018Q1

REPORT INFORMATION
  Report Type: Spontaneous
  Country: AU (occurrence: AU)
  Receive Date: 20180216
  Receipt Date: 20180309
  Transmission Date: 20180509
  Serious: Yes (Other)
  Sender: FDA-Public Use
  Company Number: AU-ASTRAZENECA-2017SE95491

PATIENT
  Age: 20706 Day
  Sex: Female
  Weight: 65 kg

DRUGS (5)
  1. TAGRISSO [Suspect]
     Active Substance: OSIMERTINIB
     Indication: NON-SMALL CELL LUNG CANCER
     Route: 048
     Dates: start: 20170921
  2. IRESSA [Suspect]
     Active Substance: GEFITINIB
     Route: 048
  3. TAGRISSO [Suspect]
     Active Substance: OSIMERTINIB
     Indication: NON-SMALL CELL LUNG CANCER
     Route: 048
     Dates: start: 20170710, end: 20170914
  4. TAGRISSO [Suspect]
     Active Substance: OSIMERTINIB
     Indication: LUNG NEOPLASM MALIGNANT
     Route: 048
     Dates: start: 20170710, end: 20170914
  5. TAGRISSO [Suspect]
     Active Substance: OSIMERTINIB
     Indication: LUNG NEOPLASM MALIGNANT
     Route: 048
     Dates: start: 20170921

REACTIONS (2)
  - Nausea [Recovered/Resolved]
  - Malignant neoplasm progression [Unknown]

NARRATIVE: CASE EVENT DATE: 20170628
